FAERS Safety Report 20764683 (Version 1)
Quarter: 2022Q2

REPORT INFORMATION
  Report Type: Report from Study
  Country: BR (occurrence: BR)
  Receive Date: 20220428
  Receipt Date: 20220428
  Transmission Date: 20220721
  Serious: Yes (Other)
  Sender: FDA-Public Use
  Company Number: BR-NOVARTISPH-NVSC2022BR097923

PATIENT
  Sex: Female
  Weight: 56 kg

DRUGS (2)
  1. COSENTYX [Suspect]
     Active Substance: SECUKINUMAB
     Indication: Product used for unknown indication
     Dosage: UNK (5 YEARS AGO)
     Route: 065
  2. LOSARTAN [Suspect]
     Active Substance: LOSARTAN
     Indication: Product used for unknown indication
     Dosage: UNK UNK, QD (20 YEARS AGO)
     Route: 065

REACTIONS (24)
  - Diabetes mellitus [Unknown]
  - Chills [Recovered/Resolved]
  - Pyrexia [Unknown]
  - Pain in extremity [Recovered/Resolved]
  - Thyroid disorder [Unknown]
  - Weight decreased [Recovered/Resolved]
  - Injury [Unknown]
  - Pain [Unknown]
  - Rash macular [Unknown]
  - Dry skin [Unknown]
  - Skin fissures [Unknown]
  - Skin plaque [Unknown]
  - Nervousness [Unknown]
  - Petechiae [Unknown]
  - Limb discomfort [Unknown]
  - Insomnia [Unknown]
  - Skin adhesion [Unknown]
  - Illness [Unknown]
  - Psoriasis [Unknown]
  - Pruritus [Unknown]
  - Hypertension [Unknown]
  - Nasopharyngitis [Unknown]
  - Device use error [Unknown]
  - Drug ineffective [Unknown]
